FAERS Safety Report 19857278 (Version 2)
Quarter: 2021Q4

REPORT INFORMATION
  Report Type: Report from Study
  Country: NL (occurrence: NL)
  Receive Date: 20210921
  Receipt Date: 20211203
  Transmission Date: 20220303
  Serious: Yes (Other)
  Sender: FDA-Public Use
  Company Number: NL-AMGEN-NLDSL2021142209

PATIENT
  Age: 66 Year
  Sex: Male

DRUGS (6)
  1. XGEVA [Suspect]
     Active Substance: DENOSUMAB
     Indication: Prophylaxis
     Dosage: 120 MILLIGRAM/1.7 ML, Q4WK
     Route: 058
     Dates: start: 20200616
  2. ENZALUTAMIDE [Suspect]
     Active Substance: ENZALUTAMIDE
     Indication: Product used for unknown indication
     Dosage: 40 MILLIGRAM, QID
     Route: 065
     Dates: end: 20210831
  3. AMLODIPINE [Concomitant]
     Active Substance: AMLODIPINE BESYLATE
     Dosage: 5 MILLIGRAM, QD
  4. CALCIUM CARBONATE\CHOLECALCIFEROL [Concomitant]
     Active Substance: CALCIUM CARBONATE\CHOLECALCIFEROL
     Dosage: UNK UNK, QD ,5G/880IE (1000MG CA)
  5. GOSERELIN [Concomitant]
     Active Substance: GOSERELIN
     Dosage: UNK 10,8MG, 1X3M1INJ
  6. PERINDOPRIL [Concomitant]
     Active Substance: PERINDOPRIL
     Dosage: 4 MILLIGRAM, QD

REACTIONS (4)
  - Epilepsy [Recovering/Resolving]
  - Mitral valve incompetence [Unknown]
  - Syncope [Unknown]
  - Pyrexia [Recovered/Resolved]

NARRATIVE: CASE EVENT DATE: 20210831
